FAERS Safety Report 10243832 (Version 1)
Quarter: 2014Q2

REPORT INFORMATION
  Report Type: Spontaneous
  Country: US (occurrence: US)
  Receive Date: 20140618
  Receipt Date: 20140618
  Transmission Date: 20141212
  Serious: No
  Sender: FDA-Public Use
  Company Number: US-JNJFOC-20140603339

PATIENT
  Sex: Female
  Weight: 72.58 kg

DRUGS (5)
  1. DURAGESIC [Suspect]
     Indication: PAIN
     Route: 062
     Dates: start: 1990
  2. DARVOCET [Concomitant]
     Indication: BREAKTHROUGH PAIN
     Route: 048
     Dates: start: 1980
  3. CORGARD [Concomitant]
     Indication: BLOOD PRESSURE
     Route: 048
     Dates: start: 1980
  4. TYLENOL [Concomitant]
     Indication: PAIN
     Route: 048
  5. NEURONTIN [Concomitant]
     Indication: NEURALGIA
     Route: 048
     Dates: start: 2000

REACTIONS (4)
  - Product quality issue [Unknown]
  - Incorrect drug administration duration [Not Recovered/Not Resolved]
  - Wrong technique in drug usage process [Not Recovered/Not Resolved]
  - Adverse event [Unknown]
